FAERS Safety Report 12865322 (Version 1)
Quarter: 2016Q4

REPORT INFORMATION
  Report Type: Spontaneous
  Country: CN (occurrence: CN)
  Receive Date: 20161020
  Receipt Date: 20161020
  Transmission Date: 20170207
  Serious: Yes (Hospitalization)
  Sender: FDA-Public Use
  Company Number: CN-BAXTER-2016BAX052374

PATIENT
  Age: 40 Year
  Sex: Female
  Weight: 52.2 kg

DRUGS (37)
  1. 5% GLUCOSE  INJECTION [Suspect]
     Active Substance: DEXTROSE
     Indication: MEDICATION DILUTION
     Dosage: SOLVENT FOR TROPISETRON HYDROCHLORIDE
     Route: 041
     Dates: start: 20160429, end: 20160502
  2. PHARMORUBICIN [Suspect]
     Active Substance: EPIRUBICIN
     Dosage: DOSE REINTRODUCED
     Route: 041
  3. PROMETHAZINE HYDROCHLORIDE. [Suspect]
     Active Substance: PROMETHAZINE HYDROCHLORIDE
     Indication: VOMITING
     Route: 030
     Dates: start: 20160429, end: 20160430
  4. DEXAMETHASONE ACETATE [Suspect]
     Active Substance: DEXAMETHASONE ACETATE
     Dosage: DOSE REINTRODUCED
     Route: 048
  5. TROPISETRON HYDROCHLORIDE [Suspect]
     Active Substance: TROPISETRON HYDROCHLORIDE
     Dosage: DOSE REINTRODUCED
     Route: 041
  6. 0.9% SODIUM CHLORIDE INJECTION [Suspect]
     Active Substance: SODIUM CHLORIDE
     Indication: MEDICATION DILUTION
     Dosage: SOLVENT FOR LANSOPRAZOLE
     Route: 041
     Dates: start: 20160429, end: 20160502
  7. DOCETAXEL. [Suspect]
     Active Substance: DOCETAXEL
     Dosage: DOSE REINTRODUCED (DOCETAXEL 70 MILLIGRAM)
     Route: 041
  8. DEXRAZOXANE. [Suspect]
     Active Substance: DEXRAZOXANE
     Dosage: DOSE REINTRODUCED
     Route: 041
  9. TROPISETRON HYDROCHLORIDE [Suspect]
     Active Substance: TROPISETRON HYDROCHLORIDE
     Indication: VOMITING
     Route: 041
     Dates: start: 20160429, end: 20160502
  10. 0.9% SODIUM CHLORIDE INJECTION [Suspect]
     Active Substance: SODIUM CHLORIDE
     Dosage: SOLVENT FOR DOCETAXEL INJECTION 40 MG
     Route: 041
     Dates: start: 20160430, end: 20160430
  11. 0.9% SODIUM CHLORIDE INJECTION [Suspect]
     Active Substance: SODIUM CHLORIDE
     Dosage: DOSE REINTRODUCED (SOLVENT FOR EPIRUBICIN HYDROCHLORIDE)
     Route: 041
  12. 0.9% SODIUM CHLORIDE INJECTION [Suspect]
     Active Substance: SODIUM CHLORIDE
     Dosage: DOSE REINTRODUCED (SOLVENT FOR DOCETAXEL INJECTION 70 MG)
     Route: 041
  13. ENDOXAN [Suspect]
     Active Substance: CYCLOPHOSPHAMIDE
     Dosage: DOSE REINTRODUCED
     Route: 041
  14. 0.9% SODIUM CHLORIDE INJECTION [Suspect]
     Active Substance: SODIUM CHLORIDE
     Dosage: SOLVENT FOR CYCLOPHOSPHAMIDE
     Route: 041
     Dates: start: 20160429, end: 20160429
  15. 0.9% SODIUM CHLORIDE INJECTION [Suspect]
     Active Substance: SODIUM CHLORIDE
     Dosage: DOSE REINTRODUCED (SOLVENT FOR DEXRAZOXANE)
     Route: 041
  16. DOCETAXEL. [Suspect]
     Active Substance: DOCETAXEL
     Dosage: DAY 2 CHEMOTHERAPY
     Route: 041
     Dates: start: 20160430, end: 20160430
  17. DOCETAXEL. [Suspect]
     Active Substance: DOCETAXEL
     Dosage: DOSE REINTRODUCED (DOCETAXEL 40 MILLIGRAM)
     Route: 041
  18. 0.9% SODIUM CHLORIDE INJECTION [Suspect]
     Active Substance: SODIUM CHLORIDE
     Dosage: SOLVENT FOR DEXRAZOXANE
     Route: 041
     Dates: start: 20160429, end: 20160429
  19. 0.9% SODIUM CHLORIDE INJECTION [Suspect]
     Active Substance: SODIUM CHLORIDE
     Dosage: SOLVENT FOR EPIRUBICIN HYDROCHLORIDE
     Route: 041
     Dates: start: 20160429, end: 20160429
  20. 0.9% SODIUM CHLORIDE INJECTION [Suspect]
     Active Substance: SODIUM CHLORIDE
     Dosage: DOSE REINTRODUCED (SOLVENT FOR LANSOPRAZOLE)
     Route: 041
  21. 0.9% SODIUM CHLORIDE INJECTION [Suspect]
     Active Substance: SODIUM CHLORIDE
     Dosage: DOSE REINTRODUCED (SOLVENT FOR CYCLOPHOSPHAMIDE)
     Route: 041
  22. 0.9% SODIUM CHLORIDE INJECTION [Suspect]
     Active Substance: SODIUM CHLORIDE
     Dosage: DOSE REINTRODUCED (SOLVENT FOR DOCETAXEL INJECTION 40 MG)
     Route: 041
  23. DOCETAXEL. [Suspect]
     Active Substance: DOCETAXEL
     Indication: BREAST CANCER
     Dosage: DAY 2 CHEMOTHERAPY
     Route: 041
     Dates: start: 20160430, end: 20160430
  24. DEXRAZOXANE. [Suspect]
     Active Substance: DEXRAZOXANE
     Indication: PROPHYLAXIS
     Route: 041
     Dates: start: 20160429, end: 20160429
  25. DEXAMETHASONE SODIUM PHOSPHATE. [Suspect]
     Active Substance: DEXAMETHASONE SODIUM PHOSPHATE
     Dosage: DOSE REINTRODUCED
     Route: 042
  26. PROMETHAZINE HYDROCHLORIDE. [Suspect]
     Active Substance: PROMETHAZINE HYDROCHLORIDE
     Dosage: DOSE REINTRODUCED
     Route: 030
  27. DEXAMETHASONE ACETATE [Suspect]
     Active Substance: DEXAMETHASONE ACETATE
     Indication: ALLERGY PROPHYLAXIS
     Route: 048
     Dates: start: 20160429, end: 20160430
  28. RHUG-CSF [Suspect]
     Active Substance: GRANULOCYTE COLONY-STIMULATING FACTOR NOS
     Indication: BONE MARROW FAILURE
     Route: 058
     Dates: start: 201605
  29. 0.9% SODIUM CHLORIDE INJECTION [Suspect]
     Active Substance: SODIUM CHLORIDE
     Dosage: SOLVENT FOR DOCETAXEL INJECTION 70 MG
     Route: 041
     Dates: start: 20160430, end: 20160430
  30. PHARMORUBICIN [Suspect]
     Active Substance: EPIRUBICIN
     Indication: BREAST CANCER
     Dosage: DAY 1 CHEMOTHERAPY
     Route: 041
     Dates: start: 20160429, end: 20160429
  31. LANSOPRAZOLE. [Suspect]
     Active Substance: LANSOPRAZOLE
     Indication: PROPHYLAXIS
     Route: 041
     Dates: start: 20160429, end: 20160502
  32. 5% GLUCOSE  INJECTION [Suspect]
     Active Substance: DEXTROSE
     Dosage: DOSE REINTRODUCED (SOLVENT FOR TROPISETRON HYDROCHLORIDE)
     Route: 041
  33. DEXAMETHASONE SODIUM PHOSPHATE. [Suspect]
     Active Substance: DEXAMETHASONE SODIUM PHOSPHATE
     Indication: ALLERGY PROPHYLAXIS
     Route: 042
     Dates: start: 20160429, end: 20160430
  34. RANITIDINE HYDROCHLORIDE. [Suspect]
     Active Substance: RANITIDINE HYDROCHLORIDE
     Indication: PROPHYLAXIS
     Route: 048
     Dates: start: 20160429, end: 20160430
  35. RANITIDINE HYDROCHLORIDE. [Suspect]
     Active Substance: RANITIDINE HYDROCHLORIDE
     Dosage: DOSE REINTRODUCED
     Route: 048
  36. LANSOPRAZOLE. [Suspect]
     Active Substance: LANSOPRAZOLE
     Dosage: DOSE REINTRODUCED
     Route: 041
  37. ENDOXAN [Suspect]
     Active Substance: CYCLOPHOSPHAMIDE
     Indication: BREAST CANCER
     Dosage: DAY 1 CHEMOTHERAPY
     Route: 041
     Dates: start: 20160429, end: 20160429

REACTIONS (5)
  - Nausea [Unknown]
  - Pyrexia [Recovering/Resolving]
  - Bone marrow failure [Recovering/Resolving]
  - Decreased appetite [Unknown]
  - Alopecia [Unknown]

NARRATIVE: CASE EVENT DATE: 20160505
